FAERS Safety Report 7442428-1 (Version None)
Quarter: 2011Q2

REPORT INFORMATION
  Report Type: 
  Country: None (occurrence: None)
  Receive Date: 20110428
  Receipt Date: 20110420
  Transmission Date: 20111010
  Serious: Yes (Hospitalization)
  Sender: FDA-Public Use
  Company Number: CA-ROCHE-771867

PATIENT
  Sex: Female

DRUGS (4)
  1. NAPROXEN [Concomitant]
  2. TOCILIZUMAB [Suspect]
     Indication: RHEUMATOID ARTHRITIS
     Route: 042
     Dates: start: 20101201
  3. PREDNISONE [Concomitant]
  4. TOCILIZUMAB [Suspect]
     Dosage: RE-INTRODUCED AFTER INTERRUPTION
     Route: 042

REACTIONS (3)
  - RHINORRHOEA [None]
  - HIP ARTHROPLASTY [None]
  - DIARRHOEA [None]
